FAERS Safety Report 8005035-8 (Version None)
Quarter: 2011Q4

REPORT INFORMATION
  Report Type: 
  Country: None (occurrence: None)
  Receive Date: 20111223
  Receipt Date: 20111214
  Transmission Date: 20120403
  Serious: Yes (Life-Threatening, Other)
  Sender: FDA-Public Use
  Company Number: NL-NOVOPROD-340838

PATIENT

DRUGS (3)
  1. VICTOZA [Suspect]
     Indication: TYPE 2 DIABETES MELLITUS
     Dosage: UNK
     Route: 065
     Dates: start: 20110501, end: 20110801
  2. QUETIAPINE [Concomitant]
     Dosage: 1
     Dates: start: 20110701
  3. MIRTAZAPINE [Concomitant]
     Dosage: 1
     Dates: start: 20110901

REACTIONS (6)
  - MENTAL IMPAIRMENT [None]
  - NAUSEA [None]
  - SUICIDAL IDEATION [None]
  - DEPRESSION [None]
  - SEXUAL DYSFUNCTION [None]
  - DECREASED APPETITE [None]
